FAERS Safety Report 4756538-0 (Version None)
Quarter: 2005Q3

REPORT INFORMATION
  Report Type: 
  Country: None (occurrence: None)
  Receive Date: 20050830
  Receipt Date: 20050727
  Transmission Date: 20060218
  Serious: No
  Sender: FDA-Public Use
  Company Number: US-GLAXOSMITHKLINE-A0567923A

PATIENT
  Age: 30 Year
  Sex: Male

DRUGS (3)
  1. WELLBUTRIN XL [Suspect]
     Indication: DEPRESSION
     Dosage: 450MG PER DAY
     Route: 048
  2. CEPHALOSPORIN [Concomitant]
  3. ANESTHESIA [Concomitant]

REACTIONS (1)
  - COOMBS TEST POSITIVE [None]
